FAERS Safety Report 25802463 (Version 1)
Quarter: 2025Q3

REPORT INFORMATION
  Report Type: Spontaneous
  Country: US (occurrence: None)
  Receive Date: 20250913
  Receipt Date: 20250913
  Transmission Date: 20251020
  Serious: Yes (Disabling)
  Sender: FDA-CTU
  Company Number: None

PATIENT
  Age: 64 Year
  Sex: Female
  Weight: 71.1 kg

DRUGS (16)
  1. VENLAFAXINE HYDROCHLORIDE [Suspect]
     Active Substance: VENLAFAXINE HYDROCHLORIDE
     Indication: Depression
     Dates: start: 20150110
  2. VENLAFAXINE HYDROCHLORIDE [Suspect]
     Active Substance: VENLAFAXINE HYDROCHLORIDE
     Indication: Generalised anxiety disorder
  3. 2 mg estradiol [Concomitant]
  4. medroxyprogesterone 2.5 [Concomitant]
  5. VALSARTAN [Concomitant]
     Active Substance: VALSARTAN
  6. metoprolol 25x2 [Concomitant]
  7. hydralazine 25x2 [Concomitant]
  8. Trazadone 37.5 [Concomitant]
  9. Doxepine 20 [Concomitant]
  10. Mirtazipine 45 [Concomitant]
  11. BACLOFEN [Concomitant]
     Active Substance: BACLOFEN
  12. Oxycodone 10x4 [Concomitant]
  13. VITAMIN D [Concomitant]
     Active Substance: VITAMIN D NOS
  14. VITAMIN C [Concomitant]
     Active Substance: ASCORBIC ACID
  15. HERBALS\TURMERIC [Concomitant]
     Active Substance: HERBALS\TURMERIC
  16. ZINC [Concomitant]
     Active Substance: ZINC

REACTIONS (22)
  - Withdrawal syndrome [None]
  - Nausea [None]
  - Headache [None]
  - Head discomfort [None]
  - Tremor [None]
  - Muscle spasms [None]
  - Akathisia [None]
  - Photophobia [None]
  - Anxiety [None]
  - Agitation [None]
  - Depersonalisation/derealisation disorder [None]
  - Derealisation [None]
  - Arthralgia [None]
  - Fatigue [None]
  - Lethargy [None]
  - Insomnia [None]
  - Formication [None]
  - Pruritus [None]
  - Skin burning sensation [None]
  - Negative thoughts [None]
  - Suicidal ideation [None]
  - Loss of personal independence in daily activities [None]

NARRATIVE: CASE EVENT DATE: 20220602
